FAERS Safety Report 19202549 (Version 1)
Quarter: 2021Q2

REPORT INFORMATION
  Report Type: Spontaneous
  Country: GB (occurrence: GB)
  Receive Date: 20210430
  Receipt Date: 20210430
  Transmission Date: 20210717
  Serious: Yes (Other)
  Sender: FDA-Public Use
  Company Number: GB-TEVA-2021-GB-1905136

PATIENT
  Age: 8 Month
  Sex: Male

DRUGS (6)
  1. PREDNISOLONE. [Suspect]
     Active Substance: PREDNISOLONE
     Indication: EOSINOPHILIC COLITIS
     Dosage: TAPERED OFF IN 7 MONTHS
     Route: 065
  2. METRONIDAZOLE. [Concomitant]
     Active Substance: METRONIDAZOLE
     Indication: NECROTISING COLITIS
     Dosage: UNK
  3. PREDNISOLONE. [Suspect]
     Active Substance: PREDNISOLONE
     Dosage: 1 MG/KG, QD
     Route: 048
  4. AMIKACIN. [Concomitant]
     Active Substance: AMIKACIN
     Indication: NECROTISING COLITIS
  5. SULBACTAM [Concomitant]
     Active Substance: SULBACTAM
     Indication: NECROTISING COLITIS
     Dosage: UNK
  6. AMPICILLIN [Concomitant]
     Active Substance: AMPICILLIN
     Indication: NECROTISING COLITIS
     Dosage: UNK

REACTIONS (3)
  - Eosinophilic colitis [Recovering/Resolving]
  - Therapeutic response decreased [Unknown]
  - Drug resistance [Recovering/Resolving]
